FAERS Safety Report 25270013 (Version 1)
Quarter: 2025Q2

REPORT INFORMATION
  Report Type: Spontaneous
  Country: FR (occurrence: FR)
  Receive Date: 20250505
  Receipt Date: 20250505
  Transmission Date: 20250717
  Serious: Yes (Other)
  Sender: MYLAN
  Company Number: None

PATIENT
  Age: 48 Year
  Sex: Male

DRUGS (32)
  1. PREGABALIN [Suspect]
     Active Substance: PREGABALIN
     Indication: Product used for unknown indication
     Dosage: 900 MILLIGRAM, QD
  2. PREGABALIN [Suspect]
     Active Substance: PREGABALIN
     Dosage: 900 MILLIGRAM, QD
     Route: 065
  3. PREGABALIN [Suspect]
     Active Substance: PREGABALIN
     Dosage: 900 MILLIGRAM, QD
     Route: 065
  4. PREGABALIN [Suspect]
     Active Substance: PREGABALIN
     Dosage: 900 MILLIGRAM, QD
  5. ESCITALOPRAM [Interacting]
     Active Substance: ESCITALOPRAM OXALATE
     Indication: Product used for unknown indication
     Dosage: 5 MILLIGRAM, QD
  6. ESCITALOPRAM [Interacting]
     Active Substance: ESCITALOPRAM OXALATE
     Dosage: 5 MILLIGRAM, QD
     Route: 048
  7. ESCITALOPRAM [Interacting]
     Active Substance: ESCITALOPRAM OXALATE
     Dosage: 5 MILLIGRAM, QD
     Route: 048
  8. ESCITALOPRAM [Interacting]
     Active Substance: ESCITALOPRAM OXALATE
     Dosage: 5 MILLIGRAM, QD
  9. HEROIN [Suspect]
     Active Substance: DIAMORPHINE
     Indication: Product used for unknown indication
  10. HEROIN [Suspect]
     Active Substance: DIAMORPHINE
     Route: 065
  11. HEROIN [Suspect]
     Active Substance: DIAMORPHINE
     Route: 065
  12. HEROIN [Suspect]
     Active Substance: DIAMORPHINE
  13. COCAINE [Suspect]
     Active Substance: COCAINE
     Indication: Product used for unknown indication
  14. COCAINE [Suspect]
     Active Substance: COCAINE
     Route: 065
  15. COCAINE [Suspect]
     Active Substance: COCAINE
     Route: 065
  16. COCAINE [Suspect]
     Active Substance: COCAINE
  17. METHADONE HYDROCHLORIDE [Interacting]
     Active Substance: METHADONE HYDROCHLORIDE
     Indication: Product used for unknown indication
     Dosage: 80 MILLIGRAM, QD
  18. METHADONE HYDROCHLORIDE [Interacting]
     Active Substance: METHADONE HYDROCHLORIDE
     Dosage: 80 MILLIGRAM, QD
     Route: 048
  19. METHADONE HYDROCHLORIDE [Interacting]
     Active Substance: METHADONE HYDROCHLORIDE
     Dosage: 80 MILLIGRAM, QD
     Route: 048
  20. METHADONE HYDROCHLORIDE [Interacting]
     Active Substance: METHADONE HYDROCHLORIDE
     Dosage: 80 MILLIGRAM, QD
  21. CYAMEMAZINE [Interacting]
     Active Substance: CYAMEMAZINE
     Indication: Product used for unknown indication
     Dosage: 75 MILLIGRAM, QD
  22. CYAMEMAZINE [Interacting]
     Active Substance: CYAMEMAZINE
     Dosage: 75 MILLIGRAM, QD
     Route: 048
  23. CYAMEMAZINE [Interacting]
     Active Substance: CYAMEMAZINE
     Dosage: 75 MILLIGRAM, QD
     Route: 048
  24. CYAMEMAZINE [Interacting]
     Active Substance: CYAMEMAZINE
     Dosage: 75 MILLIGRAM, QD
  25. ATARAX [Interacting]
     Active Substance: HYDROXYZINE HYDROCHLORIDE
     Indication: Product used for unknown indication
  26. ATARAX [Interacting]
     Active Substance: HYDROXYZINE HYDROCHLORIDE
     Route: 048
  27. ATARAX [Interacting]
     Active Substance: HYDROXYZINE HYDROCHLORIDE
     Route: 048
  28. ATARAX [Interacting]
     Active Substance: HYDROXYZINE HYDROCHLORIDE
  29. BACLOFEN [Interacting]
     Active Substance: BACLOFEN
     Indication: Product used for unknown indication
     Dosage: 40 MILLIGRAM, QD
  30. BACLOFEN [Interacting]
     Active Substance: BACLOFEN
     Dosage: 40 MILLIGRAM, QD
     Route: 048
  31. BACLOFEN [Interacting]
     Active Substance: BACLOFEN
     Dosage: 40 MILLIGRAM, QD
     Route: 048
  32. BACLOFEN [Interacting]
     Active Substance: BACLOFEN
     Dosage: 40 MILLIGRAM, QD

REACTIONS (3)
  - Substance abuser [Not Recovered/Not Resolved]
  - Drug dependence [Not Recovered/Not Resolved]
  - Drug interaction [Unknown]
